FAERS Safety Report 14362719 (Version 1)
Quarter: 2018Q1

REPORT INFORMATION
  Report Type: Spontaneous
  Country: US (occurrence: US)
  Receive Date: 20180105
  Receipt Date: 20180105
  Transmission Date: 20180509
  Serious: Yes (Hospitalization)
  Sender: FDA-Public Use
  Company Number: None

PATIENT
  Age: 71 Year
  Sex: Female
  Weight: 75 kg

DRUGS (1)
  1. FINGOLIMOD. [Suspect]
     Active Substance: FINGOLIMOD
     Indication: MULTIPLE SCLEROSIS
     Dates: start: 20101231, end: 20160901

REACTIONS (3)
  - Infection reactivation [None]
  - Lymphoma [None]
  - Ophthalmic herpes zoster [None]

NARRATIVE: CASE EVENT DATE: 20180105
